FAERS Safety Report 18001817 (Version 1)
Quarter: 2020Q3

REPORT INFORMATION
  Report Type: Spontaneous
  Country: DE (occurrence: DE)
  Receive Date: 20200709
  Receipt Date: 20200709
  Transmission Date: 20201103
  Serious: Yes (Hospitalization)
  Sender: FDA-Public Use
  Company Number: NVSC2020DE189595

PATIENT
  Sex: Male
  Weight: 70 kg

DRUGS (2)
  1. HYRIMOZ [Suspect]
     Active Substance: ADALIMUMAB-ADAZ
     Indication: PSORIASIS
     Dosage: 40 MG
     Route: 058
     Dates: start: 20190808
  2. HYRIMOZ [Suspect]
     Active Substance: ADALIMUMAB-ADAZ
     Indication: PSORIATIC ARTHROPATHY

REACTIONS (8)
  - Intervertebral disc protrusion [Recovered/Resolved]
  - Back pain [Recovering/Resolving]
  - Hyporeflexia [Recovered/Resolved]
  - Hypertension [Unknown]
  - Monoparesis [Recovering/Resolving]
  - Pain [Recovered/Resolved]
  - Decreased gait velocity [Recovered/Resolved]
  - Muscular weakness [Recovered/Resolved]

NARRATIVE: CASE EVENT DATE: 202001
